FAERS Safety Report 8756096 (Version 7)
Quarter: 2013Q3

REPORT INFORMATION
  Report Type: Spontaneous
  Country: US (occurrence: US)
  Receive Date: 20120828
  Receipt Date: 20130821
  Transmission Date: 20140515
  Serious: Yes (Other)
  Sender: FDA-Public Use
  Company Number: US-PFIZER INC-2012207664

PATIENT
  Age: 59 Year
  Sex: Female

DRUGS (2)
  1. PREMPRO [Suspect]
     Dosage: UNK
  2. TOVIAZ [Suspect]
     Indication: URINARY INCONTINENCE
     Dosage: UNK, 2X/DAY
     Dates: start: 201209

REACTIONS (6)
  - Urinary tract disorder [Unknown]
  - Musculoskeletal disorder [Unknown]
  - Bladder disorder [Unknown]
  - Rotator cuff syndrome [Unknown]
  - Dry mouth [Unknown]
  - Hot flush [Unknown]
